FAERS Safety Report 13652578 (Version 1)
Quarter: 2017Q2

REPORT INFORMATION
  Report Type: Spontaneous
  Country: DE (occurrence: DE)
  Receive Date: 20170614
  Receipt Date: 20170614
  Transmission Date: 20170830
  Serious: Yes (Other)
  Sender: FDA-Public Use
  Company Number: DE-BAYER-2017-110511

PATIENT
  Sex: Female

DRUGS (2)
  1. MIRENA [Suspect]
     Active Substance: LEVONORGESTREL
     Indication: CONTRACEPTION
     Dosage: 20 MCG/24HR, CONT
     Route: 015
     Dates: end: 2016
  2. MIRENA [Suspect]
     Active Substance: LEVONORGESTREL
     Indication: CONTRACEPTION
     Dosage: 20 MCG/24HR, CONT
     Route: 015
     Dates: start: 2008

REACTIONS (15)
  - Fear of death [Recovered/Resolved]
  - Initial insomnia [None]
  - Middle insomnia [None]
  - Nervousness [None]
  - Depression [None]
  - Restlessness [None]
  - Emotional disorder [None]
  - Panic attack [Recovered/Resolved]
  - Emotional disorder [None]
  - Anger [None]
  - Night sweats [Recovered/Resolved]
  - Fatigue [None]
  - Asthenia [None]
  - Mood altered [None]
  - Palpitations [Recovered/Resolved]

NARRATIVE: CASE EVENT DATE: 2015
